FAERS Safety Report 8288348-4 (Version None)
Quarter: 2012Q2

REPORT INFORMATION
  Report Type: 
  Country: None (occurrence: None)
  Receive Date: 20120416
  Receipt Date: 20120409
  Transmission Date: 20120825
  Serious: Yes (Other)
  Sender: FDA-Public Use
  Company Number: US-MPIJNJ-2010-05533

PATIENT
  Age: 58 Year
  Sex: Male

DRUGS (3)
  1. LENALIDOMIDE [Suspect]
     Indication: MULTIPLE MYELOMA
  2. VELCADE [Suspect]
     Indication: MULTIPLE MYELOMA
  3. DEXAMETHASONE [Suspect]
     Indication: MULTIPLE MYELOMA

REACTIONS (7)
  - HEPATITIS C [None]
  - COLITIS ISCHAEMIC [None]
  - SEPTIC EMBOLUS [None]
  - PANCYTOPENIA [None]
  - THROMBOPHLEBITIS [None]
  - PULMONARY EMBOLISM [None]
  - BACTERAEMIA [None]
